FAERS Safety Report 25162540 (Version 1)
Quarter: 2025Q2

REPORT INFORMATION
  Report Type: Other
  Country: ES (occurrence: ES)
  Receive Date: 20250404
  Receipt Date: 20250404
  Transmission Date: 20250716
  Serious: Yes (Congenital Anomaly, Other)
  Sender: NUVO PHARMACEUTICALS
  Company Number: ES-Nuvo Pharmaceuticals Inc-2174298

PATIENT
  Sex: Female

DRUGS (5)
  1. FOLIC ACID [Suspect]
     Active Substance: FOLIC ACID
     Indication: Foetal exposure during pregnancy
  2. LAMOTRIGINE [Suspect]
     Active Substance: LAMOTRIGINE
  3. LEVOTHYROXINE [Suspect]
     Active Substance: LEVOTHYROXINE
  4. CLOBAZAM [Suspect]
     Active Substance: CLOBAZAM
  5. LEVETIRACETAM [Suspect]
     Active Substance: LEVETIRACETAM

REACTIONS (2)
  - Anterior displaced anus [Unknown]
  - Foetal exposure during pregnancy [Unknown]
